FAERS Safety Report 18479576 (Version 1)
Quarter: 2020Q4

REPORT INFORMATION
  Report Type: Spontaneous
  Country: US (occurrence: US)
  Receive Date: 20201109
  Receipt Date: 20201109
  Transmission Date: 20210114
  Serious: Yes (Other)
  Sender: FDA-Public Use
  Company Number: US-MYLANLABS-2020M1092751

PATIENT
  Age: 47 Year
  Sex: Female
  Weight: 74 kg

DRUGS (3)
  1. PANTOPRAZOLE SODIUM DELAYED-RELEASE TABLETS, USP [Suspect]
     Active Substance: PANTOPRAZOLE SODIUM
     Indication: GASTROOESOPHAGEAL REFLUX DISEASE
     Dosage: DAILY
     Route: 048
     Dates: start: 20200925, end: 20201007
  2. LOPERAMIDE [Concomitant]
     Active Substance: LOPERAMIDE
     Dosage: UNK
  3. PANTOPRAZOLE SODIUM DELAYED-RELEASE TABLETS, USP [Suspect]
     Active Substance: PANTOPRAZOLE SODIUM
     Indication: DYSPEPSIA

REACTIONS (6)
  - Tachycardia [Recovering/Resolving]
  - Supraventricular tachycardia [Not Recovered/Not Resolved]
  - Ventricular extrasystoles [Not Recovered/Not Resolved]
  - Arrhythmia [Recovering/Resolving]
  - Loss of consciousness [Recovered/Resolved]
  - Palpitations [Recovering/Resolving]

NARRATIVE: CASE EVENT DATE: 20200926
